FAERS Safety Report 8337561 (Version 2)
Quarter: 2014Q1

REPORT INFORMATION
  Report Type: Spontaneous
  Country: US (occurrence: US)
  Receive Date: 20120116
  Receipt Date: 20140123
  Transmission Date: 20141002
  Serious: Yes (Life-Threatening, Hospitalization, Other)
  Sender: FDA-Public Use
  Company Number: US-BAYER-2012-004176

PATIENT
  Age: 36 Year
  Sex: Female

DRUGS (4)
  1. YAZ [Suspect]
  2. YASMIN [Suspect]
  3. OCELLA [Suspect]
  4. LIPITOR [Concomitant]

REACTIONS (9)
  - Cholecystitis chronic [None]
  - Biliary dyskinesia [None]
  - Organ failure [None]
  - Internal injury [None]
  - Pain [None]
  - Injury [None]
  - General physical health deterioration [None]
  - Anxiety [None]
  - Anhedonia [None]
